FAERS Safety Report 9987642 (Version 2)
Quarter: 2014Q1

REPORT INFORMATION
  Report Type: Spontaneous
  Country: US (occurrence: US)
  Receive Date: 20140307
  Receipt Date: 20140314
  Transmission Date: 20141002
  Serious: Yes (Other)
  Sender: FDA-Public Use
  Company Number: US-AMGEN-USASP2014013292

PATIENT
  Age: 39 Year
  Sex: Female
  Weight: 77.09 kg

DRUGS (4)
  1. ENBREL [Suspect]
     Indication: PSORIATIC ARTHROPATHY
     Dosage: 50 MG, 2 TIMES/WK
     Route: 058
     Dates: start: 20131216
  2. CYCLOSPORINE [Suspect]
     Indication: PRODUCT USED FOR UNKNOWN INDICATION
     Dosage: UNK
     Route: 065
  3. SYNTHROID [Concomitant]
     Dosage: UNK
  4. TRIAMCINOLONE                      /00031902/ [Concomitant]
     Dosage: 10 MG, UNK

REACTIONS (11)
  - Joint swelling [Recovered/Resolved]
  - Local swelling [Recovered/Resolved]
  - Psoriatic arthropathy [Unknown]
  - Cellulitis [Unknown]
  - Abscess [Unknown]
  - Gait disturbance [Unknown]
  - Erythema [Unknown]
  - Nodule [Unknown]
  - Dermal cyst [Unknown]
  - Arthritis [Unknown]
  - Psoriasis [Unknown]
